FAERS Safety Report 10840420 (Version 1)
Quarter: 2015Q1

REPORT INFORMATION
  Report Type: Report from Study
  Country: US (occurrence: US)
  Receive Date: 20150220
  Receipt Date: 20150220
  Transmission Date: 20150721
  Serious: No
  Sender: FDA-Public Use
  Company Number: US-ABBVIE-14P-163-1244888-00

PATIENT
  Age: 15 Year
  Sex: Female
  Weight: 44.49 kg

DRUGS (2)
  1. HUMIRA [Suspect]
     Active Substance: ADALIMUMAB
  2. HUMIRA [Suspect]
     Active Substance: ADALIMUMAB
     Indication: CROHN^S DISEASE
     Dosage: 4 INJECTION LOADING DOSE
     Route: 058
     Dates: start: 20140602, end: 20140602

REACTIONS (4)
  - Injection site pain [Recovered/Resolved]
  - Bowel movement irregularity [Not Recovered/Not Resolved]
  - Device issue [Unknown]
  - Paraesthesia [Recovered/Resolved]

NARRATIVE: CASE EVENT DATE: 201406
